FAERS Safety Report 18986651 (Version 1)
Quarter: 2021Q1

REPORT INFORMATION
  Report Type: Spontaneous
  Country: GB (occurrence: GB)
  Receive Date: 20210309
  Receipt Date: 20210309
  Transmission Date: 20210420
  Serious: Yes (Other)
  Sender: FDA-Public Use
  Company Number: GB-NOVOPROD-792269

PATIENT
  Age: 28 Year
  Sex: Female

DRUGS (1)
  1. NOVOMIX 30 FLEXPEN [Suspect]
     Active Substance: INSULIN ASPART
     Indication: TYPE 2 DIABETES MELLITUS
     Dosage: 28?40 UNITS ONCE DAILY
     Route: 065

REACTIONS (4)
  - Abortion spontaneous [Unknown]
  - Diabetes mellitus inadequate control [Unknown]
  - Lipodystrophy acquired [Unknown]
  - Maternal exposure during pregnancy [Recovered/Resolved]
